FAERS Safety Report 6979539-0 (Version None)
Quarter: 2010Q3

REPORT INFORMATION
  Report Type: 
  Country: None (occurrence: None)
  Receive Date: 20100913
  Receipt Date: 20100908
  Transmission Date: 20110219
  Serious: Yes (Death, Hospitalization, Other)
  Sender: FDA-Public Use
  Company Number: PHHY2010MX35915

PATIENT
  Sex: Female

DRUGS (1)
  1. FEMARA [Suspect]
     Indication: BREAST CANCER
     Dosage: 1 TABLET (2.5 MG) DAILY
     Route: 048
     Dates: start: 20060801, end: 20080120

REACTIONS (8)
  - LEUKAEMIA [None]
  - MALIGNANT NEOPLASM PROGRESSION [None]
  - METASTASES TO CENTRAL NERVOUS SYSTEM [None]
  - METASTASES TO HEART [None]
  - METASTASES TO LUNG [None]
  - PLEURAL EFFUSION [None]
  - PLEURECTOMY [None]
  - RESPIRATORY ARREST [None]
